FAERS Safety Report 13945872 (Version 1)
Quarter: 2017Q3

REPORT INFORMATION
  Report Type: Spontaneous
  Country: GB (occurrence: GB)
  Receive Date: 20170907
  Receipt Date: 20170907
  Transmission Date: 20171128
  Serious: Yes (Hospitalization, Other)
  Sender: FDA-Public Use
  Company Number: GB-TEVA-801848ACC

PATIENT
  Age: 17 Year
  Sex: Male

DRUGS (2)
  1. FENTANYL. [Suspect]
     Active Substance: FENTANYL
     Dosage: FREQ: ONCE
     Route: 048
     Dates: start: 20170501
  2. NORFENTANYL [Suspect]
     Active Substance: NORFENTANYL

REACTIONS (8)
  - Renal impairment [Unknown]
  - Blood creatine phosphokinase increased [Unknown]
  - Abnormal behaviour [Unknown]
  - Depressed level of consciousness [Recovered/Resolved]
  - Coagulopathy [Unknown]
  - Pyrexia [Unknown]
  - Alanine aminotransferase increased [Unknown]
  - Tachycardia [Unknown]

NARRATIVE: CASE EVENT DATE: 20170501
